FAERS Safety Report 4760393-2 (Version None)
Quarter: 2005Q3

REPORT INFORMATION
  Report Type: 
  Country: None (occurrence: None)
  Receive Date: 20050902
  Receipt Date: 20050715
  Transmission Date: 20060218
  Serious: Yes (Hospitalization)
  Sender: FDA-Public Use
  Company Number: JP-GLAXOSMITHKLINE-B0388053A

PATIENT
  Age: 59 Year
  Sex: Female
  Weight: 39 kg

DRUGS (11)
  1. COMBIVIR [Suspect]
     Indication: ACQUIRED IMMUNODEFICIENCY SYNDROME
     Dosage: 2TAB PER DAY
     Route: 048
     Dates: start: 20040713, end: 20050630
  2. STOCRIN [Suspect]
     Dosage: 600MG PER DAY
     Route: 048
     Dates: start: 20040713
  3. MEBRON [Suspect]
     Dosage: 750MG TWICE PER DAY
     Route: 048
     Dates: start: 20040701
  4. ZITHROMAC [Suspect]
     Dosage: 250MG PER DAY
     Route: 048
     Dates: start: 20050701
  5. EPIVIR [Concomitant]
     Indication: HIV INFECTION
     Dosage: 300MG PER DAY
     Route: 048
     Dates: start: 20050706, end: 20050720
  6. CLARITHROMYCIN [Concomitant]
     Route: 048
  7. PREDONINE [Concomitant]
     Dosage: 4MG PER DAY
     Route: 065
     Dates: start: 20050419
  8. TRYPTANOL [Concomitant]
     Route: 048
  9. OMEPRAZOLE [Concomitant]
     Dosage: 20MG PER DAY
     Route: 065
     Dates: start: 20050419
  10. TENOFOVIR DISOPROXIL FUMARATE [Concomitant]
     Indication: HIV INFECTION
     Route: 048
     Dates: start: 20050706
  11. EMTRICITABINE [Concomitant]
     Indication: HIV INFECTION
     Route: 048
     Dates: start: 20050721

REACTIONS (3)
  - ANAEMIA [None]
  - CARDIAC FAILURE [None]
  - HAEMOGLOBIN DECREASED [None]
